FAERS Safety Report 21508055 (Version 3)
Quarter: 2025Q4

REPORT INFORMATION
  Report Type: Report from Study
  Country: EU (occurrence: EU)
  Receive Date: 20221026
  Receipt Date: 20251228
  Transmission Date: 20260117
  Serious: Yes (Hospitalization, Other)
  Sender: TEVA
  Company Number: EU-ROCHE-3017431

PATIENT
  Age: 48 Year
  Sex: Female
  Weight: 58 kg

DRUGS (70)
  1. CAPECITABINE [Suspect]
     Active Substance: CAPECITABINE
     Indication: HER2 positive breast cancer
     Dosage: MOST RECENT DOSE PRIOR TO AE 09/DEC/2021
     Route: 048
     Dates: start: 20210109, end: 20211209
  2. CAPECITABINE [Suspect]
     Active Substance: CAPECITABINE
     Indication: HER2 positive breast cancer
     Dosage: 500 MG, FREQUENCY: OTHER SIX TIMES A DAY FOR 14 DAYS, 7 DAYS BREAK
     Route: 048
     Dates: start: 20200923, end: 20201220
  3. CEOLAT [Concomitant]
     Indication: Product used for unknown indication
     Dosage: OTHER UP TO 3 X DAILY 10 ML
     Route: 048
     Dates: start: 20190815
  4. TRAZODONE HYDROCHLORIDE [Concomitant]
     Active Substance: TRAZODONE HYDROCHLORIDE
     Indication: Product used for unknown indication
     Route: 048
     Dates: start: 20190716, end: 20200926
  5. VALACYCLOVIR HYDROCHLORIDE [Concomitant]
     Active Substance: VALACYCLOVIR HYDROCHLORIDE
     Indication: Product used for unknown indication
     Route: 048
     Dates: start: 20190716, end: 20191011
  6. DEXAMETHASONE [Concomitant]
     Active Substance: DEXAMETHASONE
     Indication: Intracranial pressure increased
     Route: 065
     Dates: start: 20211229, end: 20220110
  7. LOVENOX [Concomitant]
     Active Substance: ENOXAPARIN SODIUM
     Indication: COVID-19
     Dosage: ONGOING = NOT CHECKED
     Route: 048
     Dates: start: 20210302, end: 20210305
  8. ALPRAZOLAM [Concomitant]
     Active Substance: ALPRAZOLAM
     Indication: Product used for unknown indication
     Dosage: DOSAGE TEXT: UNIT DOSE : 0.5 MG, PRN
     Route: 048
     Dates: start: 20190715
  9. OLANZAPINE [Concomitant]
     Active Substance: OLANZAPINE
     Indication: Product used for unknown indication
     Dosage: DOSAGE TEXT: UNIT DOSE : 10 DAYS, DURATION : 15 DAYS, OTHER 0-0-1/2
     Route: 048
     Dates: start: 20190821, end: 20190904
  10. OLANZAPINE [Concomitant]
     Active Substance: OLANZAPINE
     Indication: Product used for unknown indication
     Dosage: DOSAGE TEXT: UNIT DOSE : 10 MG, DURATION : 389 DAYS, OTHER 0-0-1/2
     Route: 048
     Dates: start: 20190904, end: 20200926
  11. ZOFRAN [Concomitant]
     Active Substance: ONDANSETRON HYDROCHLORIDE
     Indication: COVID-19
     Dosage: DOSAGE TEXT: FREQUENCY TIME : 0.5 DAY, DURATION: 72 DAYS, UNIT DOSE : 8 MG,
     Route: 065
     Dates: start: 20190705, end: 20190914
  12. ZOFRAN [Concomitant]
     Active Substance: ONDANSETRON HYDROCHLORIDE
     Indication: COVID-19
     Dosage: DOSAGE TEXT: UNIT DOSE : 8 MG, DURATION : 366 DAYS, PRN
     Route: 042
     Dates: start: 20190704, end: 20200703
  13. ZOFRAN [Concomitant]
     Active Substance: ONDANSETRON HYDROCHLORIDE
     Indication: COVID-19
     Dosage: DOSAGE TEXT: FREQUENCY TIME : 3 WEEKS, UNIT DOSE : 8 MG, ONGOING = CHECKED
     Route: 042
     Dates: start: 20220110
  14. ZOFRAN [Concomitant]
     Active Substance: ONDANSETRON HYDROCHLORIDE
     Indication: COVID-19
     Dosage: DOSAGE TEXT: FREQUENCY TIME : 1 DAY, DURATION: 1 DAY, UNIT DOSE : 4 MG,
     Route: 048
     Dates: start: 20210302, end: 20210302
  15. ZOFRAN [Concomitant]
     Active Substance: ONDANSETRON HYDROCHLORIDE
     Indication: COVID-19
     Dosage: DOSAGE TEXT: UNIT DOSE : 8 MG, PRN
     Route: 048
     Dates: start: 20190701
  16. FILGRASTIM [Concomitant]
     Active Substance: FILGRASTIM
     Indication: Product used for unknown indication
     Route: 065
     Dates: start: 20220420, end: 20220421
  17. HERCEPTIN [Suspect]
     Active Substance: TRASTUZUMAB
     Indication: HER2 positive breast cancer
     Dosage: 1 TIMES IN 3 WEEK
     Route: 042
     Dates: start: 20190724, end: 20190912
  18. HERCEPTIN [Suspect]
     Active Substance: TRASTUZUMAB
     Indication: HER2 positive breast cancer
     Dosage: 1 TIMES IN 3 WEEK
     Route: 042
     Dates: end: 20230206
  19. AMOXICILLIN\CLAVULANATE POTASSIUM [Concomitant]
     Active Substance: AMOXICILLIN\CLAVULANATE POTASSIUM
     Indication: Influenza
     Dosage: DOSAGE TEXT: DURATION : 7 DAYS, FREQUENCY TIME : 0.5 DAYS, UNIT DOSE : 875 MG,
     Route: 048
     Dates: start: 20200527, end: 20200602
  20. PERTUZUMAB [Suspect]
     Active Substance: PERTUZUMAB
     Indication: HER2 positive breast cancer
     Dosage: MOST RECENT DOSE PRIOR TO AE 12/SEP/2019
     Route: 042
     Dates: start: 20190724, end: 20190912
  21. LOPERAMIDE HYDROCHLORIDE [Concomitant]
     Active Substance: LOPERAMIDE HYDROCHLORIDE
     Indication: Diarrhoea
     Dosage: ONGOING = CHECKED
     Route: 048
     Dates: start: 20210215
  22. TYKERB [Suspect]
     Active Substance: LAPATINIB DITOSYLATE
     Indication: HER2 positive breast cancer
     Dosage: MOST RECENT DOSE PRIOR TO THE EVENT: 09/JAN/2021?250 MG, 5 TIMES DAILY
     Route: 065
     Dates: start: 20200923, end: 20201228
  23. TYKERB [Suspect]
     Active Substance: LAPATINIB DITOSYLATE
     Indication: HER2 positive breast cancer
     Dosage: MOST RECENT DOSE PRIOR TO AE 16/DEC/2021
     Route: 065
     Dates: start: 20210109, end: 20211216
  24. ACETAMINOPHEN [Concomitant]
     Active Substance: ACETAMINOPHEN
     Indication: Product used for unknown indication
     Dosage: DOSAGE TEXT: UNIT DOSE : 500 MG, PRN
     Route: 048
     Dates: start: 20190701
  25. EUTHYROX [Concomitant]
     Active Substance: LEVOTHYROXINE SODIUM
     Indication: Product used for unknown indication
     Dosage: DOSAGE TEXT: UNIT DOSE : 75 UG, FREQUENCY TIME : 1 DAY
     Route: 048
     Dates: end: 201906
  26. EUTHYROX [Concomitant]
     Active Substance: LEVOTHYROXINE SODIUM
     Indication: Product used for unknown indication
     Dosage: DOSAGE TEXT: DURATION : 455 DAYS, UNIT DOSE : 50 UG, FREQUENCY TIME : 1 DAY
     Route: 048
     Dates: start: 20190703, end: 20200929
  27. EUTHYROX [Concomitant]
     Active Substance: LEVOTHYROXINE SODIUM
     Indication: Product used for unknown indication
     Dosage: DOSAGE TEXT: FREQUENCY TIME : 1DAY, UNIT DOSE : 25 UG, DURATION : 101 DAYS
     Route: 048
     Dates: start: 20200930, end: 20210108
  28. DRONABINOL [Concomitant]
     Active Substance: DRONABINOL
     Indication: Product used for unknown indication
     Dosage: DOSAGE TEXT: DURATION : 751 DAYS, UNIT DOSE : 2.5 %, 2 DROP-2 DROP-2 DROP
     Route: 048
     Dates: start: 20190716, end: 20210804
  29. DRONABINOL [Concomitant]
     Active Substance: DRONABINOL
     Indication: Product used for unknown indication
     Dosage: DOSAGE TEXT: UNIT DOSE : 2.5 %, ONGOING = CHECKED
     Route: 048
     Dates: start: 20210705
  30. LENDORM [Concomitant]
     Active Substance: BROTIZOLAM
     Indication: Insomnia
     Dosage: DOSAGE TEXT: UNIT DOSE : 0.25 MG, PRN
     Route: 048
     Dates: start: 20211229, end: 20211229
  31. EMEND [Concomitant]
     Active Substance: APREPITANT
     Indication: Product used for unknown indication
     Route: 048
     Dates: start: 20220621
  32. EMEND [Concomitant]
     Active Substance: APREPITANT
     Indication: Product used for unknown indication
     Dosage: ONGOING = CHECKED
     Route: 048
     Dates: start: 20220621
  33. KADCYLA [Suspect]
     Active Substance: ADO-TRASTUZUMAB EMTANSINE
     Indication: HER2 positive breast cancer
     Route: 042
     Dates: start: 20191014, end: 20200518
  34. KADCYLA [Suspect]
     Active Substance: ADO-TRASTUZUMAB EMTANSINE
     Indication: HER2 positive breast cancer
     Dosage: MOST RECENT DOSE PRIOR TO AE 03/JUL/2020
     Route: 042
     Dates: start: 20200703, end: 20200703
  35. CITALOPRAM [Concomitant]
     Active Substance: CITALOPRAM
     Indication: Product used for unknown indication
     Dosage: DOSAGE TEXT: FREQUENCY TIME : 1 DAY, UNIT DOSE : 20 MG, ONGOING = CHECKED
     Route: 048
     Dates: start: 20190715
  36. FERRETAB [Concomitant]
     Indication: Product used for unknown indication
     Route: 065
  37. ACETAMINOPHEN [Concomitant]
     Active Substance: ACETAMINOPHEN
     Indication: COVID-19
     Dosage: TIME INTERVAL: AS NECESSARY: DOSAGE TEXT: PRN (AS NEEDED)UNIT DOSE : 1 GM,DURATION : 2 DAY
     Route: 048
     Dates: start: 20210302, end: 20210303
  38. FAM-TRASTUZUMAB DERUXTECAN-NXKI [Suspect]
     Active Substance: FAM-TRASTUZUMAB DERUXTECAN-NXKI
     Indication: HER2 positive breast cancer
     Dosage: MOST RECENT DOSE PRIOR TO AE 31/JAN/2022?1 TIMES IN 3 WEEK
     Route: 042
     Dates: start: 20220110, end: 20220131
  39. FAM-TRASTUZUMAB DERUXTECAN-NXKI [Suspect]
     Active Substance: FAM-TRASTUZUMAB DERUXTECAN-NXKI
     Indication: HER2 positive breast cancer
     Dosage: MOST RECENT DOSE: 24/MAR/2023
     Route: 042
     Dates: start: 20220324, end: 20220324
  40. FAM-TRASTUZUMAB DERUXTECAN-NXKI [Suspect]
     Active Substance: FAM-TRASTUZUMAB DERUXTECAN-NXKI
     Indication: HER2 positive breast cancer
     Route: 042
     Dates: start: 20220419
  41. SUCRALAN [Concomitant]
     Indication: Product used for unknown indication
     Dosage: DOSAGE TEXT: UNIT DOSE : 1 GM, PRN
     Route: 048
     Dates: start: 20190701
  42. NEURONTIN [Concomitant]
     Active Substance: GABAPENTIN
     Indication: Product used for unknown indication
     Dosage: DOSAGE TEXT: DURATION : 1 DAY, FREQUENCY TIME : 0.5 DAYS,UNIT DOSE : 300 MG,
     Route: 048
     Dates: start: 201908, end: 201908
  43. DEXAMETHASONE [Concomitant]
     Active Substance: DEXAMETHASONE
     Indication: COVID-19
     Route: 048
     Dates: start: 20190705, end: 20190914
  44. DEXAMETHASONE [Concomitant]
     Active Substance: DEXAMETHASONE
     Indication: COVID-19
     Route: 048
     Dates: start: 20220111, end: 20220112
  45. DEXAMETHASONE [Concomitant]
     Active Substance: DEXAMETHASONE
     Indication: COVID-19
     Dosage: ONGOING = NOT CHECKED
     Route: 048
     Dates: start: 20210302, end: 20210304
  46. DEXAMETHASONE [Concomitant]
     Active Substance: DEXAMETHASONE
     Indication: COVID-19
     Route: 042
     Dates: start: 20190704, end: 20190912
  47. DEXAMETHASONE [Concomitant]
     Active Substance: DEXAMETHASONE
     Indication: COVID-19
     Route: 042
     Dates: start: 20220110
  48. DEXAMETHASONE [Concomitant]
     Active Substance: DEXAMETHASONE
     Indication: COVID-19
     Route: 048
     Dates: start: 20220113, end: 20220114
  49. DEXAMETHASONE [Concomitant]
     Active Substance: DEXAMETHASONE
     Indication: COVID-19
     Route: 065
     Dates: start: 20220115, end: 20220323
  50. ASCORBIC ACID\CALCIUM PHOSPHATE\CHOLECALCIFEROL\CITRIC ACID MONOHYDRAT [Concomitant]
     Active Substance: ASCORBIC ACID\CALCIUM PHOSPHATE\CHOLECALCIFEROL\CITRIC ACID MONOHYDRATE
     Indication: Product used for unknown indication
     Dosage: DOSAGE TEXT: UNIT DOSE : 500 MG, ONGOING = CHECKED, CALCIDURAN [ASCORBIC ACID;CALCIUM PHOSPHATE;C...
     Route: 048
     Dates: start: 20190717
  51. POLYETHYLENE GLYCOL 4000 [Concomitant]
     Active Substance: POLYETHYLENE GLYCOL 4000
     Indication: Product used for unknown indication
     Dosage: DOSAGE TEXT: FREQUENCY TIME : 3 DAYS, UNIT DOSE : 10 MG, ONGOING = CHECKED
     Route: 048
     Dates: start: 20190705
  52. PANTOPRAZOLE SODIUM [Concomitant]
     Active Substance: PANTOPRAZOLE SODIUM
     Indication: COVID-19
     Dosage: DOSAGE TEXT: DURATION : 9 DAYS, FREQUENCY TIME : 1 DAY, UNIT DOSE : 40 MG, ONGOING = CHECKED
     Route: 048
     Dates: start: 20210222, end: 20210302
  53. PANTOPRAZOLE SODIUM [Concomitant]
     Active Substance: PANTOPRAZOLE SODIUM
     Indication: COVID-19
     Dosage: DOSAGE TEXT: FREQUENCY TIME : 1 DAY, UNIT DOSE : 40 MG, ONGOING = CHECKED
     Route: 048
     Dates: start: 20190701
  54. PANTOPRAZOLE SODIUM [Concomitant]
     Active Substance: PANTOPRAZOLE SODIUM
     Indication: COVID-19
     Dosage: ONGOING = CHECKED
     Route: 065
     Dates: start: 20210302, end: 20210303
  55. HYDROMORPHONE HYDROCHLORIDE [Concomitant]
     Active Substance: HYDROMORPHONE HYDROCHLORIDE
     Indication: Product used for unknown indication
     Dosage: DOSAGE TEXT: UNIT DOSE : 1.3 MG, PRN
     Route: 048
     Dates: start: 20190716
  56. HYDROMORPHONE HYDROCHLORIDE [Concomitant]
     Active Substance: HYDROMORPHONE HYDROCHLORIDE
     Indication: Product used for unknown indication
     Dosage: DOSAGE TEXT: DURATION : 440 DAYS, FREQUENCY TIME : 0.5 DAYS,UNIT DOSE : 2 MG,
     Route: 048
     Dates: start: 20190716, end: 20200927
  57. HYDROMORPHONE HYDROCHLORIDE [Concomitant]
     Active Substance: HYDROMORPHONE HYDROCHLORIDE
     Indication: Product used for unknown indication
     Dosage: DOSAGE TEXT: FREQUENCY TIME : 0.5 DAYS, UNIT DOSE: 2 MG
     Route: 048
     Dates: start: 20220207
  58. LACTULOSE [Concomitant]
     Active Substance: LACTULOSE
     Indication: Product used for unknown indication
     Route: 065
  59. XELODA [Suspect]
     Active Substance: CAPECITABINE
     Indication: HER2 positive breast cancer
     Route: 048
     Dates: start: 20200923, end: 20201220
  60. XELODA [Suspect]
     Active Substance: CAPECITABINE
     Indication: HER2 positive breast cancer
     Dosage: MOST RECENT DOSE PRIOR TO AE 09/DEC/2021, 22/MAR/2021
     Route: 048
     Dates: start: 20210109
  61. ORNITHINE ASPARTATE [Concomitant]
     Active Substance: ORNITHINE ASPARTATE
     Indication: Product used for unknown indication
     Dosage: 2 TIMES IN 1 DAY
     Route: 065
     Dates: start: 20220401, end: 20220419
  62. URSODIOL [Concomitant]
     Active Substance: URSODIOL
     Indication: Gamma-glutamyltransferase increased
     Route: 065
     Dates: start: 20220401
  63. NEULASTA [Concomitant]
     Active Substance: PEGFILGRASTIM
     Indication: Product used for unknown indication
     Route: 065
     Dates: start: 20220420
  64. XGEVA [Concomitant]
     Active Substance: DENOSUMAB
     Indication: Product used for unknown indication
     Dosage: ONGOING = CHECKED
     Route: 065
     Dates: start: 20191011
  65. TAXOL [Suspect]
     Active Substance: PACLITAXEL
     Indication: HER2 positive breast cancer
     Dosage: MOST RECENT DOSE PRIOR TO AE 12/SEP/2019
     Route: 042
     Dates: start: 20190724, end: 20190912
  66. DEXAMETHASONE [Concomitant]
     Active Substance: DEXAMETHASONE
     Indication: COVID-19
     Route: 065
     Dates: start: 20211229, end: 20220110
  67. DEXAMETHASONE [Concomitant]
     Active Substance: DEXAMETHASONE
     Indication: COVID-19
     Route: 048
     Dates: start: 20220622
  68. PFIZER-BIONTECH COVID-19 VACCINE [Concomitant]
     Active Substance: TOZINAMERAN
     Indication: Product used for unknown indication
     Route: 065
     Dates: start: 20220125, end: 20220125
  69. TUCATINIB [Suspect]
     Active Substance: TUCATINIB
     Indication: Product used for unknown indication
     Dosage: MOST RECENT DOSE PRIOR TO THE EVENT: 22/JAN/2023
     Route: 048
     Dates: start: 20230102
  70. UNASYN [Concomitant]
     Active Substance: AMPICILLIN SODIUM\SULBACTAM SODIUM
     Indication: Product used for unknown indication
     Route: 065
     Dates: start: 20220919

REACTIONS (18)
  - Vascular device infection [Recovered/Resolved]
  - Insomnia [Not Recovered/Not Resolved]
  - Gamma-glutamyltransferase increased [Recovered/Resolved]
  - Iron deficiency anaemia [Recovered/Resolved]
  - Intracranial pressure increased [Recovered/Resolved]
  - Asthenia [Recovered/Resolved]
  - Aphthous ulcer [Recovered/Resolved]
  - General physical health deterioration [Recovered/Resolved]
  - Platelet count decreased [Recovered/Resolved]
  - Diarrhoea [Recovered/Resolved]
  - COVID-19 [Recovered/Resolved]
  - Neutrophil count decreased [Recovered/Resolved]
  - Neutropenia [Recovered/Resolved]
  - Thrombocytopenia [Not Recovered/Not Resolved]
  - Blood bilirubin increased [Recovered/Resolved]
  - COVID-19 [Recovered/Resolved]
  - Blood bilirubin increased [Recovered/Resolved]
  - COVID-19 [Recovered/Resolved]

NARRATIVE: CASE EVENT DATE: 20201228
